FAERS Safety Report 5367417-2 (Version None)
Quarter: 2007Q2

REPORT INFORMATION
  Report Type: 
  Country: None (occurrence: None)
  Receive Date: 20070622
  Receipt Date: 20060918
  Transmission Date: 20071010
  Serious: No
  Sender: FDA-Public Use
  Company Number: US-ASTRAZENECA-2006UW18215

PATIENT
  Age: 78 Year
  Sex: Male
  Weight: 86.2 kg

DRUGS (5)
  1. PULMICORT [Suspect]
     Indication: CHRONIC OBSTRUCTIVE PULMONARY DISEASE
     Dosage: 2 PUFFS BID
     Route: 055
     Dates: start: 20050101
  2. PULMICORT [Suspect]
     Dosage: DISPENSED IN APRIL 2006
     Route: 055
     Dates: start: 20050101
  3. SPIRIVA [Concomitant]
  4. ALBUTEROL [Concomitant]
  5. SALINE SOLUTION [Concomitant]

REACTIONS (2)
  - DYSPHONIA [None]
  - RHINORRHOEA [None]
